FAERS Safety Report 8001289-2 (Version None)
Quarter: 2011Q4

REPORT INFORMATION
  Report Type: 
  Country: None (occurrence: None)
  Receive Date: 20111222
  Receipt Date: 20111220
  Transmission Date: 20120403
  Serious: Yes (Death)
  Sender: FDA-Public Use
  Company Number: CA-ABBOTT-11P-028-0885314-00

PATIENT
  Sex: Male

DRUGS (1)
  1. LUPRON DEPOT [Suspect]
     Indication: PROSTATE CANCER
     Dates: start: 20051108, end: 20111004

REACTIONS (1)
  - ANEURYSM [None]
